FAERS Safety Report 9305037 (Version 1)
Quarter: 2013Q2

REPORT INFORMATION
  Report Type: Spontaneous
  Country: US (occurrence: None)
  Receive Date: 20130522
  Receipt Date: 20130522
  Transmission Date: 20140414
  Serious: No
  Sender: FDA-Public Use
  Company Number: None

PATIENT
  Age: 43 Year
  Sex: Female

DRUGS (3)
  1. ACYCLOVIR [Suspect]
     Dates: start: 20100718, end: 20100721
  2. MULTIPLE CAM PROUDCTS [Suspect]
     Dates: start: 20100915, end: 20101008
  3. VALACYCLOVIR [Suspect]
     Dates: start: 20100620, end: 20100728

REACTIONS (2)
  - Malaise [None]
  - Hepatitis acute [None]
